FAERS Safety Report 20762267 (Version 2)
Quarter: 2022Q2

REPORT INFORMATION
  Report Type: Report from Study
  Country: US (occurrence: US)
  Receive Date: 20220428
  Receipt Date: 20220507
  Transmission Date: 20220721
  Serious: No
  Sender: FDA-Public Use
  Company Number: US-NOVARTISTESTPH-NVSC2022US098382

PATIENT
  Sex: Male

DRUGS (1)
  1. COSENTYX [Suspect]
     Active Substance: SECUKINUMAB
     Indication: Psoriatic arthropathy
     Dosage: 300 MG, QMO (EVERY FOUR WEEKS)
     Route: 058

REACTIONS (6)
  - Wheezing [Unknown]
  - Anxiety [Unknown]
  - Abdominal discomfort [Unknown]
  - Seasonal allergy [Unknown]
  - Hypersensitivity [Unknown]
  - Therapeutic response shortened [Unknown]
